FAERS Safety Report 19275410 (Version 12)
Quarter: 2023Q2

REPORT INFORMATION
  Report Type: Report from Study
  Country: US (occurrence: US)
  Receive Date: 20210519
  Receipt Date: 20230609
  Transmission Date: 20230721
  Serious: Yes (Hospitalization, Other)
  Sender: FDA-Public Use
  Company Number: US-TAKEDA-US201911099

PATIENT
  Sex: Female

DRUGS (4)
  1. HUMAN IMMUNOGLOBULIN G [Suspect]
     Active Substance: HUMAN IMMUNOGLOBULIN G
     Indication: Primary immunodeficiency syndrome
     Dosage: UNK
     Route: 058
  2. GAMMAGARD LIQUID [Suspect]
     Active Substance: HUMAN IMMUNOGLOBULIN G
     Indication: Primary immunodeficiency syndrome
     Dosage: UNK
     Route: 042
  3. GAMMAGARD LIQUID [Suspect]
     Active Substance: HUMAN IMMUNOGLOBULIN G
     Indication: Immunodeficiency common variable
  4. COVID-19 VACCINE NOS [Suspect]
     Active Substance: COVID-19 VACCINE NOS
     Indication: Product used for unknown indication
     Dosage: UNK
     Route: 065

REACTIONS (21)
  - Fall [Unknown]
  - Renal haemorrhage [Unknown]
  - Diverticulitis [Unknown]
  - Renal vascular thrombosis [Recovered/Resolved]
  - Dehydration [Unknown]
  - Urinary tract infection [Recovering/Resolving]
  - COVID-19 [Recovering/Resolving]
  - Pharyngitis streptococcal [Recovering/Resolving]
  - Polyp [Unknown]
  - Illness [Unknown]
  - Road traffic accident [Unknown]
  - Feeling abnormal [Not Recovered/Not Resolved]
  - Somnolence [Unknown]
  - Fatigue [Unknown]
  - Weight decreased [Unknown]
  - Pharyngitis [Unknown]
  - Eye infection [Unknown]
  - Torticollis [Unknown]
  - Vein collapse [Unknown]
  - Depression [Unknown]
  - Arthralgia [Unknown]
